FAERS Safety Report 6356802-8 (Version None)
Quarter: 2009Q3

REPORT INFORMATION
  Report Type: 
  Country: None (occurrence: None)
  Receive Date: 20090915
  Receipt Date: 20090903
  Transmission Date: 20100115
  Serious: Yes (Other)
  Sender: FDA-Public Use
  Company Number: DE-ELI_LILLY_AND_COMPANY-DE200909000846

PATIENT
  Age: 70 Year
  Sex: Female

DRUGS (3)
  1. FORTEO [Suspect]
     Indication: OSTEOPOROSIS
     Dosage: 20 UG, UNKNOWN
     Route: 058
     Dates: start: 20090324, end: 20090714
  2. PREDNISOLONE [Concomitant]
     Dosage: 4 MG, UNKNOWN
     Route: 065
  3. PAIN RELIEF [Concomitant]
     Indication: PAIN
     Dosage: UNK, 2/D
     Route: 065

REACTIONS (5)
  - APATHY [None]
  - DIZZINESS [None]
  - FATIGUE [None]
  - NAUSEA [None]
  - SUDDEN HEARING LOSS [None]
